FAERS Safety Report 19741873 (Version 1)
Quarter: 2021Q3

REPORT INFORMATION
  Report Type: Spontaneous
  Country: IT (occurrence: IT)
  Receive Date: 20210824
  Receipt Date: 20210824
  Transmission Date: 20211014
  Serious: Yes (Other)
  Sender: FDA-Public Use
  Company Number: IT-MYLANLABS-2021M1053904

PATIENT
  Age: 55 Year
  Sex: Female

DRUGS (6)
  1. CARBOPLATIN. [Suspect]
     Active Substance: CARBOPLATIN
     Indication: BREAST CANCER
     Dosage: 1 DOSAGE FORM, CYCLE
     Route: 042
     Dates: start: 20210323, end: 20210420
  2. MODERNA COVID?19 VACCINE [Concomitant]
     Active Substance: CX-024414
     Indication: COVID-19 IMMUNISATION
     Dosage: 1 DOSAGE FORM, TOTAL
     Route: 030
     Dates: start: 20210421, end: 20210421
  3. PACLITAXEL. [Suspect]
     Active Substance: PACLITAXEL
     Indication: BREAST CANCER
     Dosage: 1 DOSAGE FORM, CYCLE
     Route: 042
     Dates: start: 20210323, end: 20210420
  4. PERTUZUMAB. [Suspect]
     Active Substance: PERTUZUMAB
     Indication: BREAST CANCER
     Dosage: 1 DOSAGE FORM, CYCLE
     Route: 042
     Dates: start: 20210323, end: 20210420
  5. ATEZOLIZUMAB. [Suspect]
     Active Substance: ATEZOLIZUMAB
     Indication: BREAST CANCER
     Dosage: 1 DOSAGE FORM, CYCLE
     Route: 042
     Dates: start: 20210323, end: 20210420
  6. TRASTUZUMAB. [Suspect]
     Active Substance: TRASTUZUMAB
     Indication: BREAST CANCER
     Dosage: 1 DOSAGE FORM, CYCLE
     Route: 042
     Dates: start: 20210323, end: 20210420

REACTIONS (4)
  - Diarrhoea [Recovering/Resolving]
  - Decreased appetite [Recovering/Resolving]
  - Cachexia [Recovering/Resolving]
  - Dehydration [Recovering/Resolving]

NARRATIVE: CASE EVENT DATE: 20210424
